FAERS Safety Report 9213643 (Version 1)
Quarter: 2013Q2

REPORT INFORMATION
  Report Type: Spontaneous
  Country: US (occurrence: US)
  Receive Date: 20130405
  Receipt Date: 20130405
  Transmission Date: 20140414
  Serious: Yes (Other)
  Sender: FDA-Public Use
  Company Number: US-PFIZER INC-2013106169

PATIENT
  Sex: Female

DRUGS (1)
  1. NEURONTIN [Suspect]
     Dosage: UNK

REACTIONS (11)
  - Dementia Alzheimer^s type [Unknown]
  - Memory impairment [Unknown]
  - Faecal incontinence [Unknown]
  - Nervous system disorder [Unknown]
  - Mental disorder [Unknown]
  - Feeling abnormal [Unknown]
  - Pain [Unknown]
  - Rash [Unknown]
  - Headache [Unknown]
  - Dyspnoea [Unknown]
  - Injury [Unknown]
